FAERS Safety Report 23738159 (Version 3)
Quarter: 2024Q2

REPORT INFORMATION
  Report Type: Spontaneous
  Country: IT (occurrence: IT)
  Receive Date: 20240412
  Receipt Date: 20240426
  Transmission Date: 20240716
  Serious: No
  Sender: FDA-Public Use
  Company Number: IT-PFIZER INC-PV202400048717

PATIENT
  Age: 51 Year
  Sex: Female

DRUGS (10)
  1. ISAVUCONAZONIUM SULFATE [Suspect]
     Active Substance: ISAVUCONAZONIUM SULFATE
     Indication: Evidence based treatment
     Dosage: 200 MG, DAILY
     Dates: start: 2023
  2. NIRMATRELVIR\RITONAVIR [Suspect]
     Active Substance: NIRMATRELVIR\RITONAVIR
     Indication: COVID-19 treatment
     Dosage: 300 MG/100 MG BID
     Route: 048
     Dates: start: 202302
  3. CYCLOSPORINE [Concomitant]
     Active Substance: CYCLOSPORINE
     Dosage: 50 MG, 2X/DAY
     Route: 048
     Dates: start: 2023
  4. LETERMOVIR [Concomitant]
     Active Substance: LETERMOVIR
     Dosage: 240 MG, DAILY
     Dates: start: 2023
  5. VALACYCLOVIR HYDROCHLORIDE [Concomitant]
     Active Substance: VALACYCLOVIR HYDROCHLORIDE
     Dosage: 500 MG, DAILY
     Dates: start: 2023
  6. COTRIMOXAZOLE [Concomitant]
     Active Substance: SULFAMETHOXAZOLE\TRIMETHOPRIM
     Dosage: 160/800 MG TWICE WEEKLY
     Dates: start: 2023
  7. PREDNISOLONE [Concomitant]
     Active Substance: PREDNISOLONE
     Dosage: 25 MG, DAILY
     Dates: start: 2023
  8. MOLNUPIRAVIR [Concomitant]
     Active Substance: MOLNUPIRAVIR
     Indication: COVID-19 treatment
     Dosage: 800 MG, 2X/DAY
     Route: 048
     Dates: start: 2023, end: 20230221
  9. REMDESIVIR [Concomitant]
     Active Substance: REMDESIVIR
     Dosage: 200 MG THE FIRST DAY FOLLOWED BY 100 MG FOR 35 DAYS (INFUSION)
     Route: 042
     Dates: start: 2023
  10. SOTROVIMAB [Concomitant]
     Active Substance: SOTROVIMAB
     Indication: COVID-19
     Dosage: INFUSION
     Route: 042
     Dates: start: 2023

REACTIONS (1)
  - Off label use [Unknown]

NARRATIVE: CASE EVENT DATE: 20230101
